FAERS Safety Report 25722577 (Version 1)
Quarter: 2025Q3

REPORT INFORMATION
  Report Type: Spontaneous
  Country: US (occurrence: US)
  Receive Date: 20250825
  Receipt Date: 20250825
  Transmission Date: 20251020
  Serious: Yes (Other)
  Sender: SANOFI AVENTIS
  Company Number: US-SA-2025SA251737

PATIENT
  Sex: Female

DRUGS (12)
  1. LEMTRADA [Suspect]
     Active Substance: ALEMTUZUMAB
     Indication: Secondary progressive multiple sclerosis
     Dosage: UNK UNK, QD
     Route: 042
     Dates: start: 20160229, end: 20160304
  2. OCREVUS [Suspect]
     Active Substance: OCRELIZUMAB
     Route: 065
  3. KEPPRA [Concomitant]
     Active Substance: LEVETIRACETAM
  4. LACOSAMIDE [Concomitant]
     Active Substance: LACOSAMIDE
  5. BACLOFEN [Concomitant]
     Active Substance: BACLOFEN
  6. ASPIRIN [Concomitant]
     Active Substance: ASPIRIN
  7. TRINTELLIX [Concomitant]
     Active Substance: VORTIOXETINE HYDROBROMIDE
  8. COLACE [Concomitant]
     Active Substance: DOCUSATE SODIUM
  9. VALACYCLOVIR [Concomitant]
     Active Substance: VALACYCLOVIR HYDROCHLORIDE
  10. HIPREX [Concomitant]
     Active Substance: METHENAMINE HIPPURATE
  11. NAYZILAM [Concomitant]
     Active Substance: MIDAZOLAM
  12. RITUXAN [Concomitant]
     Active Substance: RITUXIMAB

REACTIONS (4)
  - Multiple sclerosis relapse [Unknown]
  - Gait inability [Unknown]
  - Mobility decreased [Unknown]
  - Feeding disorder [Unknown]
